FAERS Safety Report 4318447-0 (Version None)
Quarter: 2004Q1

REPORT INFORMATION
  Report Type: 
  Country: None (occurrence: None)
  Receive Date: 20040315
  Receipt Date: 20040302
  Transmission Date: 20041129
  Serious: Yes (Hospitalization)
  Sender: FDA-Public Use
  Company Number: SE-JNJFOC-20040300559

PATIENT
  Age: 57 Year
  Sex: Female

DRUGS (6)
  1. REMICADE [Suspect]
     Indication: RHEUMATOID ARTHRITIS
     Dosage: 300 MG, INTRAVENOUS
     Route: 042
  2. METHOTREXATE [Suspect]
     Indication: RHEUMATOID ARTHRITIS
     Dosage: 7.5 MG, 1 IN 1 WEEK
     Route: 048
  3. PREDNISOLONE [Suspect]
     Indication: RHEUMATOID ARTHRITIS
     Dosage: 5 MG, 1 IN 1 DAY, ORAL
     Route: 048
  4. DIKLOFENAK (DICLOFENAC) [Concomitant]
  5. ACTIVELLE       (KLIOGEST) [Concomitant]
  6. PANTOLOC        (PANTOPRAZOLE) [Concomitant]

REACTIONS (5)
  - APPENDICITIS [None]
  - CHILLS [None]
  - FATIGUE [None]
  - PROCEDURAL COMPLICATION [None]
  - PYREXIA [None]
